FAERS Safety Report 18509598 (Version 1)
Quarter: 2020Q4

REPORT INFORMATION
  Report Type: Spontaneous
  Country: FR (occurrence: FR)
  Receive Date: 20201117
  Receipt Date: 20201117
  Transmission Date: 20210114
  Serious: Yes (Other)
  Sender: FDA-Public Use
  Company Number: FR-TEVA-2020-FR-1848801

PATIENT
  Age: 68 Year
  Sex: Male

DRUGS (4)
  1. TERBINAFINE. [Suspect]
     Active Substance: TERBINAFINE
     Indication: PRODUCT USED FOR UNKNOWN INDICATION
     Route: 065
  2. IBUPROFEN. [Suspect]
     Active Substance: IBUPROFEN
     Indication: PRODUCT USED FOR UNKNOWN INDICATION
     Route: 065
  3. LAMALINE (CAFFEINE + PAPAVER SOMNIFERUM + PARACETAMOL) [Suspect]
     Active Substance: ACETAMINOPHEN\CAFFEINE\OPIUM
     Indication: PRODUCT USED FOR UNKNOWN INDICATION
     Route: 065
  4. IOMEPROL [Suspect]
     Active Substance: IOMEPROL
     Indication: PRODUCT USED FOR UNKNOWN INDICATION
     Route: 065

REACTIONS (1)
  - Symmetrical drug-related intertriginous and flexural exanthema [Recovered/Resolved]
